FAERS Safety Report 12681914 (Version 5)
Quarter: 2020Q2

REPORT INFORMATION
  Report Type: Spontaneous
  Country: US (occurrence: US)
  Receive Date: 20160824
  Receipt Date: 20200527
  Transmission Date: 20200713
  Serious: No
  Sender: FDA-Public Use
  Company Number: US-ACTELION-A-US2016-141280

PATIENT
  Sex: Male

DRUGS (4)
  1. ADCIRCA [Concomitant]
     Active Substance: TADALAFIL
  2. OPSUMIT [Suspect]
     Active Substance: MACITENTAN
     Indication: PULMONARY ARTERIAL HYPERTENSION
     Dosage: 10 MG, QD
     Route: 048
     Dates: start: 20151130
  3. XARELTO [Concomitant]
     Active Substance: RIVAROXABAN
  4. OFEV [Concomitant]
     Active Substance: NINTEDANIB

REACTIONS (7)
  - Back disorder [Unknown]
  - Feeling abnormal [Unknown]
  - Dyspnoea exertional [Unknown]
  - Back pain [Unknown]
  - Cough [Unknown]
  - Dyspnoea [Unknown]
  - Malaise [Unknown]
